FAERS Safety Report 7819205-2 (Version None)
Quarter: 2011Q4

REPORT INFORMATION
  Report Type: 
  Country: None (occurrence: None)
  Receive Date: 20111018
  Receipt Date: 20111006
  Transmission Date: 20120403
  Serious: Yes (Hospitalization)
  Sender: FDA-Public Use
  Company Number: JP-BRISTOL-MYERS SQUIBB COMPANY-16155152

PATIENT
  Age: 77 Year
  Sex: Female

DRUGS (3)
  1. GLIMEPIRIDE [Suspect]
  2. METFORMIN HCL [Suspect]
  3. METFORMIN HCL [Suspect]

REACTIONS (1)
  - HYPOGLYCAEMIC ENCEPHALOPATHY [None]
